FAERS Safety Report 4791195-9 (Version None)
Quarter: 2005Q4

REPORT INFORMATION
  Report Type: 
  Country: None (occurrence: None)
  Receive Date: 20051005
  Receipt Date: 20050919
  Transmission Date: 20060501
  Serious: Yes (Hospitalization, Disabling)
  Sender: FDA-Public Use
  Company Number: 12393

PATIENT
  Age: 45 Year

DRUGS (6)
  1. FENTANYL [Suspect]
     Indication: ANAESTHESIA
     Dosage: 150 MG IV
     Route: 042
     Dates: start: 20050826, end: 20050826
  2. MORPHINE [Suspect]
     Indication: ANALGESIC EFFECT
     Dosage: 5 MG IV
     Route: 042
     Dates: start: 20050827, end: 20050827
  3. CEFUROXIME [Concomitant]
  4. METRONIDAZOLE [Concomitant]
  5. PROPOFOL [Concomitant]
  6. ATRACURIUM BESYLATE [Concomitant]

REACTIONS (5)
  - DRUG INEFFECTIVE [None]
  - DYSKINESIA [None]
  - DYSPHORIA [None]
  - DYSTONIA [None]
  - HYPERTONIA [None]
